FAERS Safety Report 5025256-6 (Version None)
Quarter: 2006Q2

REPORT INFORMATION
  Report Type: 
  Country: None (occurrence: None)
  Receive Date: 20060608
  Receipt Date: 20060608
  Transmission Date: 20061013
  Serious: Yes (Other)
  Sender: FDA-Public Use
  Company Number: None

PATIENT
  Age: 25 Year
  Sex: Male

DRUGS (8)
  1. TYLENOL W/ CODEINE NO. 3 [Suspect]
     Indication: ABDOMINAL PAIN
     Dosage: 2 TABLETS   BID   PO
     Route: 048
  2. TYLENOL W/ CODEINE NO. 3 [Suspect]
     Indication: PYREXIA
     Dosage: 2 TABLETS   BID   PO
     Route: 048
  3. NYQUIL [Suspect]
     Indication: ABDOMINAL PAIN
     Dosage: 2        DAILY    PO
     Route: 048
  4. NYQUIL [Suspect]
     Indication: PYREXIA
     Dosage: 2        DAILY    PO
     Route: 048
  5. ULTRAM [Concomitant]
  6. SEROQUEL [Concomitant]
  7. FLEXERIL [Concomitant]
  8. ATENOLOL [Concomitant]

REACTIONS (11)
  - ALANINE AMINOTRANSFERASE INCREASED [None]
  - ASPARTATE AMINOTRANSFERASE INCREASED [None]
  - ASTHENIA [None]
  - COUGH [None]
  - FALL [None]
  - HEADACHE [None]
  - HEPATITIS VIRAL [None]
  - OVERDOSE [None]
  - PYREXIA [None]
  - RENAL FAILURE [None]
  - RHABDOMYOLYSIS [None]
